FAERS Safety Report 10013734 (Version 5)
Quarter: 2015Q2

REPORT INFORMATION
  Report Type: Spontaneous
  Country: US (occurrence: US)
  Receive Date: 20140316
  Receipt Date: 20150408
  Transmission Date: 20150821
  Serious: Yes (Hospitalization, Other)
  Sender: FDA-Public Use
  Company Number: US-BAYER-2014-035423

PATIENT
  Age: 29 Year
  Sex: Female
  Weight: 95.24 kg

DRUGS (1)
  1. MIRENA [Suspect]
     Active Substance: LEVONORGESTREL
     Indication: CONTRACEPTION
     Dosage: 20 MCG/24HR, CONT
     Route: 015
     Dates: start: 20080908, end: 201008

REACTIONS (10)
  - Depression [None]
  - Device issue [None]
  - Emotional distress [None]
  - Scar [None]
  - Genital haemorrhage [None]
  - Menorrhagia [None]
  - Anxiety [None]
  - Pain [None]
  - Injury [None]
  - Uterine perforation [None]

NARRATIVE: CASE EVENT DATE: 2010
